FAERS Safety Report 6374701-2 (Version None)
Quarter: 2009Q3

REPORT INFORMATION
  Report Type: 
  Country: None (occurrence: None)
  Receive Date: 20090915
  Receipt Date: 20090915
  Transmission Date: 20100115
  Serious: No
  Sender: FDA-Public Use
  Company Number: None

PATIENT
  Age: 86 Year
  Sex: Female
  Weight: 74.8 kg

DRUGS (1)
  1. PENICILLIN [Suspect]
     Dates: start: 20090515, end: 20090515

REACTIONS (9)
  - ANURIA [None]
  - ASTHENIA [None]
  - ATRIOVENTRICULAR BLOCK FIRST DEGREE [None]
  - BLOOD GLUCOSE INCREASED [None]
  - BLOOD PRESSURE DIASTOLIC DECREASED [None]
  - CATHETER RELATED COMPLICATION [None]
  - COLD SWEAT [None]
  - FATIGUE [None]
  - UNRESPONSIVE TO STIMULI [None]
